FAERS Safety Report 5710656-9 (Version None)
Quarter: 2008Q2

REPORT INFORMATION
  Report Type: 
  Country: None (occurrence: None)
  Receive Date: 20080415
  Receipt Date: 20080408
  Transmission Date: 20081010
  Serious: Yes (Hospitalization)
  Sender: FDA-Public Use
  Company Number: E2020-02583-SPO-JP

PATIENT
  Age: 85 Year
  Sex: Female

DRUGS (3)
  1. ARICEPT [Suspect]
     Indication: DEMENTIA ALZHEIMER'S TYPE
     Dosage: 3 MG, 1 IN 1 D, ORAL, 5 MG, 1 IN 1 D, ORAL; 3 MG, 1 IN 1 D, ORAL
     Route: 048
     Dates: start: 20080101, end: 20080101
  2. ARICEPT [Suspect]
     Indication: DEMENTIA ALZHEIMER'S TYPE
     Dosage: 3 MG, 1 IN 1 D, ORAL, 5 MG, 1 IN 1 D, ORAL; 3 MG, 1 IN 1 D, ORAL
     Route: 048
     Dates: start: 20080101, end: 20080314
  3. ARICEPT [Suspect]
     Indication: DEMENTIA ALZHEIMER'S TYPE
     Dosage: 3 MG, 1 IN 1 D, ORAL, 5 MG, 1 IN 1 D, ORAL; 3 MG, 1 IN 1 D, ORAL
     Route: 048
     Dates: start: 20080315, end: 20080315

REACTIONS (5)
  - AGITATION [None]
  - ATRIOVENTRICULAR BLOCK FIRST DEGREE [None]
  - BRADYCARDIA [None]
  - DYSPNOEA [None]
  - HYPOTHERMIA [None]
